FAERS Safety Report 4889746-9 (Version None)
Quarter: 2006Q1

REPORT INFORMATION
  Report Type: 
  Country: None (occurrence: None)
  Receive Date: 20060124
  Receipt Date: 20050330
  Transmission Date: 20060701
  Serious: Yes (Hospitalization)
  Sender: FDA-Public Use
  Company Number: US-MERCK-0503USA05259

PATIENT
  Age: 54 Year
  Sex: Female

DRUGS (7)
  1. VIOXX [Suspect]
     Route: 048
  2. ELAVIL [Concomitant]
     Route: 048
  3. CALAN [Concomitant]
     Route: 065
  4. ESTRATEST [Concomitant]
     Route: 065
  5. PROZAC [Concomitant]
     Indication: DEPRESSION
     Route: 065
  6. CALTRATE [Concomitant]
     Route: 065
  7. ZYRTEC [Concomitant]
     Route: 065

REACTIONS (8)
  - CAROTID ARTERY STENOSIS [None]
  - CEREBROVASCULAR ACCIDENT [None]
  - DEHYDRATION [None]
  - HYPERTENSION [None]
  - HYPONATRAEMIA [None]
  - MIGRAINE [None]
  - RASH [None]
  - VOMITING [None]
